FAERS Safety Report 4502284-8 (Version None)
Quarter: 2004Q4

REPORT INFORMATION
  Report Type: 
  Country: None (occurrence: None)
  Receive Date: 20041116
  Receipt Date: 20040917
  Transmission Date: 20050328
  Serious: Yes (Other)
  Sender: FDA-Public Use
  Company Number: JP-BRISTOL-MYERS SQUIBB COMPANY-12708079

PATIENT
  Age: 59 Year
  Sex: Male

DRUGS (5)
  1. BRIPLATIN [Suspect]
     Indication: LUNG SQUAMOUS CELL CARCINOMA STAGE UNSPECIFIED
     Dosage: CYCLE 1: 28-JUN-2004
     Route: 041
     Dates: start: 20040726, end: 20040726
  2. LASTET [Suspect]
     Indication: LUNG SQUAMOUS CELL CARCINOMA STAGE UNSPECIFIED
     Dosage: CYCLE 1: 28-JUN-2004
     Route: 041
     Dates: start: 20040726, end: 20040728
  3. NASEA [Concomitant]
     Route: 041
     Dates: end: 20040728
  4. SAXIZON [Concomitant]
     Dosage: 2/1 DAY 26-JUL-2004; 1/1 DAY FROM 27-JUL TO 28-JUL-2003
     Route: 041
     Dates: start: 20040726, end: 20040728
  5. LASIX [Concomitant]
     Route: 042
     Dates: start: 20040726, end: 20040726

REACTIONS (5)
  - BLOOD CREATININE INCREASED [None]
  - BLOOD POTASSIUM INCREASED [None]
  - BLOOD UREA INCREASED [None]
  - GRANULOCYTE COUNT DECREASED [None]
  - RENAL TUBULAR ACIDOSIS [None]
